FAERS Safety Report 8249227 (Version 4)
Quarter: 2012Q4

REPORT INFORMATION
  Report Type: 
  Country: US (occurrence: US)
  Receive Date: 20111117
  Receipt Date: 20120925
  Transmission Date: 20130627
  Serious: Yes (Hospitalization, Disabling)
  Sender: FDA-Public Use
  Company Number: US-BAYER-2011-108051

PATIENT
  Age: 41 Year
  Sex: Female
  Weight: 61.22 kg

DRUGS (5)
  1. YASMIN [Suspect]
     Indication: CONTRACEPTION
     Dosage: UNK
     Dates: start: 20030629, end: 20060717
  2. ZOCOR [Concomitant]
     Indication: TYPE V HYPERLIPIDAEMIA
     Dosage: 40 mg, HS
     Route: 048
  3. ASPIRIN [Concomitant]
  4. PLAVIX [Concomitant]
  5. TORADOL [Concomitant]

REACTIONS (8)
  - Cerebral infarction [None]
  - Mobility decreased [None]
  - Mobility decreased [None]
  - Memory impairment [None]
  - Pain [None]
  - Injury [None]
  - Anxiety [None]
  - Cognitive disorder [None]
